FAERS Safety Report 6856169-2 (Version None)
Quarter: 2010Q3

REPORT INFORMATION
  Report Type: 
  Country: None (occurrence: None)
  Receive Date: 20100719
  Receipt Date: 20100713
  Transmission Date: 20110219
  Serious: Yes (Death, Other)
  Sender: FDA-Public Use
  Company Number: PHHY2010BR09646

PATIENT
  Sex: Female
  Weight: 35 kg

DRUGS (8)
  1. EXELON [Suspect]
     Indication: DEMENTIA ALZHEIMER'S TYPE
     Dosage: 1.5 MG, BID
     Route: 048
     Dates: start: 20070101
  2. EXELON [Suspect]
     Dosage: 3 MG, BID
     Route: 048
  3. EXELON [Suspect]
     Dosage: 4.5 MG, BID
     Route: 048
  4. EXELON [Suspect]
     Dosage: 6 MG, BID
     Route: 048
     Dates: start: 20080101
  5. EXELON [Suspect]
     Dosage: 6 MG, QD
     Route: 048
  6. TRAZODONE HYDROCHLORIDE [Concomitant]
     Indication: SLEEP DISORDER
     Dosage: 1 TABLET AT NIGHT
     Route: 048
     Dates: start: 20070101
  7. CAPTOPRIL [Concomitant]
     Indication: HYPERTENSION
     Dosage: 1 TABLET PER DAY
     Route: 048
     Dates: start: 20050101
  8. CALCIUM CARBONATE [Concomitant]
     Indication: OSTEOPOROSIS
     Dosage: ONCE PER DAY
     Route: 048
     Dates: start: 20070101

REACTIONS (4)
  - DEHYDRATION [None]
  - DYSPHAGIA [None]
  - MULTI-ORGAN FAILURE [None]
  - TREATMENT NONCOMPLIANCE [None]
